FAERS Safety Report 8254922-4 (Version None)
Quarter: 2012Q2

REPORT INFORMATION
  Report Type: 
  Country: None (occurrence: None)
  Receive Date: 20120403
  Receipt Date: 20120327
  Transmission Date: 20120825
  Serious: No
  Sender: FDA-Public Use
  Company Number: US-PFIZER INC-2012079693

PATIENT
  Sex: Female

DRUGS (4)
  1. ADVAIR DISKUS 100/50 [Suspect]
     Dosage: UNK
  2. POTASSIUM PENCILLIN G [Suspect]
     Dosage: UNK
  3. DARVOCET [Suspect]
     Dosage: UNK
  4. DARVON [Suspect]
     Dosage: UNK

REACTIONS (4)
  - ALLERGY TO ANIMAL [None]
  - DRUG HYPERSENSITIVITY [None]
  - SEASONAL ALLERGY [None]
  - HYPERSENSITIVITY [None]
